FAERS Safety Report 4405941-7 (Version None)
Quarter: 2004Q3

REPORT INFORMATION
  Report Type: 
  Country: None (occurrence: None)
  Receive Date: 20040723
  Receipt Date: 20040212
  Transmission Date: 20050211
  Serious: No
  Sender: FDA-Public Use
  Company Number: US-GLAXOSMITHKLINE-A0497878A

PATIENT
  Sex: Male

DRUGS (2)
  1. AVANDIA [Suspect]
     Indication: ILL-DEFINED DISORDER
     Dosage: 4MG SEE DOSAGE TEXT
     Route: 048
  2. GLYNASE [Concomitant]

REACTIONS (1)
  - HEART RATE INCREASED [None]
